FAERS Safety Report 9555766 (Version 2)
Quarter: 2013Q4

REPORT INFORMATION
  Report Type: Spontaneous
  Country: BR (occurrence: BR)
  Receive Date: 20130926
  Receipt Date: 20131217
  Transmission Date: 20140711
  Serious: Yes (Death, Other)
  Sender: FDA-Public Use
  Company Number: BR-JNJFOC-20130913083

PATIENT
  Age: 56 Year
  Sex: Female

DRUGS (1)
  1. REMICADE [Suspect]
     Indication: PSORIASIS
     Route: 042
     Dates: start: 201301, end: 201308

REACTIONS (5)
  - Infarction [Fatal]
  - Pneumonia [Recovering/Resolving]
  - Anaemia [Not Recovered/Not Resolved]
  - Extrasystoles [Unknown]
  - Fatigue [Unknown]
